FAERS Safety Report 14229378 (Version 3)
Quarter: 2018Q1

REPORT INFORMATION
  Report Type: Spontaneous
  Country: US (occurrence: US)
  Receive Date: 20171128
  Receipt Date: 20180116
  Transmission Date: 20180508
  Serious: No
  Sender: FDA-Public Use
  Company Number: US-PFIZER INC-2017510086

PATIENT
  Age: 86 Year
  Sex: Female

DRUGS (8)
  1. ESTRACE [Suspect]
     Active Substance: ESTRADIOL
     Indication: CYSTITIS
     Dosage: UNK, 2X/WEEK
  2. NITROFURANTOIN. [Concomitant]
     Active Substance: NITROFURANTOIN
     Dosage: UNK
  3. FLUCONAZOLE. [Concomitant]
     Active Substance: FLUCONAZOLE
     Indication: VULVOVAGINAL BURNING SENSATION
     Dosage: UNK
  4. PREMARIN [Suspect]
     Active Substance: ESTROGENS, CONJUGATED
     Indication: CYSTITIS
  5. PREMARIN [Suspect]
     Active Substance: ESTROGENS, CONJUGATED
     Indication: VULVOVAGINAL BURNING SENSATION
     Dosage: UNK
     Route: 067
  6. ESTRADIOL. [Suspect]
     Active Substance: ESTRADIOL
     Indication: CYSTITIS
     Dosage: UNK, 2X/WEEK
     Route: 067
  7. TEMOVATE [Suspect]
     Active Substance: CLOBETASOL PROPIONATE
     Indication: CYSTITIS
     Dosage: UNK, 2X/WEEK
  8. CLOBETASOL PROPIONATE. [Suspect]
     Active Substance: CLOBETASOL PROPIONATE
     Indication: CYSTITIS
     Dosage: UNK, 2X/WEEK

REACTIONS (1)
  - Rash macular [Recovered/Resolved]
